FAERS Safety Report 9465054 (Version 1)
Quarter: 2013Q3

REPORT INFORMATION
  Report Type: Spontaneous
  Country: US (occurrence: US)
  Receive Date: 20130819
  Receipt Date: 20130819
  Transmission Date: 20140515
  Serious: Yes (Other)
  Sender: FDA-Public Use
  Company Number: US-TEVA-426341USA

PATIENT
  Age: 45 Year
  Sex: Male

DRUGS (8)
  1. PAROXETINE [Suspect]
     Indication: MAJOR DEPRESSION
     Dosage: 12.5 MILLIGRAM DAILY; EXTENDED-RELEASE
     Route: 065
  2. PAROXETINE [Interacting]
     Indication: MAJOR DEPRESSION
     Dosage: 25 MILLIGRAM DAILY; EXTENDED RELEASE
     Route: 065
  3. PAROXETINE [Interacting]
     Indication: MAJOR DEPRESSION
     Dosage: 37.5 MILLIGRAM DAILY; EXTENDED-RELEASE
     Route: 065
  4. ZOLPIDEM [Interacting]
     Indication: MAJOR DEPRESSION
     Dosage: 10MG AT NIGHT TIME; THEN 20MG IN THE HOURS BEFORE HOMICIDE
     Route: 048
  5. ZOLPIDEM [Interacting]
     Indication: INSOMNIA
     Dosage: USUAL NIGHTTIME 10MG, THEN EXTRA PILL AT 1:30AM (20MG INGESTED)
     Route: 048
  6. LORAZEPAM [Concomitant]
     Indication: MAJOR DEPRESSION
     Dosage: AS NEEDED
     Route: 065
  7. QUETIAPINE [Concomitant]
     Indication: MAJOR DEPRESSION
     Dosage: 25 MILLIGRAM DAILY;
     Route: 065
  8. QUETIAPINE [Concomitant]
     Indication: MAJOR DEPRESSION
     Route: 065

REACTIONS (6)
  - Drug interaction [Unknown]
  - Aggression [Unknown]
  - Amnesia [Unknown]
  - Homicide [Unknown]
  - Insomnia [Unknown]
  - Extra dose administered [Unknown]
